FAERS Safety Report 4365826-1 (Version None)
Quarter: 2004Q2

REPORT INFORMATION
  Report Type: 
  Country: None (occurrence: None)
  Receive Date: 20040521
  Receipt Date: 20040512
  Transmission Date: 20050107
  Serious: Yes (Hospitalization)
  Sender: FDA-Public Use
  Company Number: 2004213713KW

PATIENT
  Age: 40 Year
  Sex: Male

DRUGS (3)
  1. METRONIDAZOLE [Suspect]
     Indication: ANTIBACTERIAL PROPHYLAXIS
     Dosage: 500 MG, SINGLE, IV
     Route: 042
     Dates: start: 19971124, end: 19971124
  2. METRONIDAZOLE [Suspect]
     Indication: ANTIBACTERIAL PROPHYLAXIS
     Dosage: 500 MG, SINGLE, IV
     Route: 042
     Dates: start: 19971125, end: 19971129
  3. CEFUROXIME [Concomitant]

REACTIONS (7)
  - BACILLUS INFECTION [None]
  - BACTEROIDES INFECTION [None]
  - ESCHERICHIA INFECTION [None]
  - PATHOGEN RESISTANCE [None]
  - POSTOPERATIVE INFECTION [None]
  - PSEUDOMONAS INFECTION [None]
  - WOUND INFECTION [None]
